FAERS Safety Report 20797946 (Version 1)
Quarter: 2022Q2

REPORT INFORMATION
  Report Type: Spontaneous
  Country: US (occurrence: US)
  Receive Date: 20220506
  Receipt Date: 20220506
  Transmission Date: 20220721
  Serious: No
  Sender: FDA-Public Use
  Company Number: None

PATIENT
  Age: 70 Year
  Sex: Male

DRUGS (1)
  1. REVLIMID [Suspect]
     Active Substance: LENALIDOMIDE
     Indication: Bone marrow transplant
     Dosage: FREQUENCY : TAKE 11 CAPSULE BY MOUTH EVERY OTHER DAY.
     Route: 048
     Dates: start: 20210920

REACTIONS (1)
  - Product prescribing issue [Unknown]
